FAERS Safety Report 9966301 (Version 2)
Quarter: 2014Q1

REPORT INFORMATION
  Report Type: Spontaneous
  Country: US (occurrence: US)
  Receive Date: 20140305
  Receipt Date: 20140305
  Transmission Date: 20141002
  Serious: Yes (Life-Threatening, Other)
  Sender: FDA-Public Use
  Company Number: US-ABBVIE-13P-163-1118876-00

PATIENT
  Age: 38 Year
  Sex: Male
  Weight: 95.34 kg

DRUGS (3)
  1. HUMIRA [Suspect]
     Indication: ANKYLOSING SPONDYLITIS
     Route: 058
     Dates: start: 20101213, end: 20130326
  2. IMURAN [Concomitant]
     Indication: FUNGAL INFECTION
     Route: 048
     Dates: start: 20120210, end: 20130326
  3. PREDNISONE [Concomitant]
     Indication: PRODUCT USED FOR UNKNOWN INDICATION
     Dosage: TAPER TO 30MG DAILY
     Route: 048
     Dates: start: 20130318

REACTIONS (2)
  - Sporotrichosis [Not Recovered/Not Resolved]
  - Fungal infection [Unknown]
